FAERS Safety Report 6714475-6 (Version None)
Quarter: 2010Q2

REPORT INFORMATION
  Report Type: 
  Country: None (occurrence: None)
  Receive Date: 20100506
  Receipt Date: 20100428
  Transmission Date: 20101027
  Serious: Yes (Other)
  Sender: FDA-Public Use
  Company Number: US-AMGEN-KDC409193

PATIENT
  Sex: Female
  Weight: 113.5 kg

DRUGS (8)
  1. ENBREL [Suspect]
     Indication: PSORIATIC ARTHROPATHY
     Dates: start: 20100106
  2. ENBREL [Suspect]
     Indication: PSORIASIS
  3. PRENATAL VITAMINS [Concomitant]
     Route: 048
     Dates: start: 20100106
  4. FOLIC ACID [Concomitant]
     Route: 048
     Dates: start: 20100106
  5. CALCIUM WITH VITAMIN D [Concomitant]
     Route: 048
     Dates: start: 20100106
  6. SYNTHROID [Concomitant]
     Route: 048
     Dates: start: 20100106
  7. CALCIPOTRIENE [Concomitant]
     Route: 061
     Dates: start: 20100106
  8. BETAMETHASONE DIPROPIONATE [Concomitant]
     Route: 061
     Dates: start: 20100106

REACTIONS (1)
  - ABORTION SPONTANEOUS [None]
